FAERS Safety Report 14741101 (Version 1)
Quarter: 2018Q2

REPORT INFORMATION
  Report Type: Spontaneous
  Country: US (occurrence: US)
  Receive Date: 20180410
  Receipt Date: 20180410
  Transmission Date: 20180711
  Serious: No
  Sender: FDA-Public Use
  Company Number: US-TEVA-2018-US-874849

PATIENT
  Age: 12 Year
  Sex: Male
  Weight: 36.2 kg

DRUGS (7)
  1. BUSULFAN. [Suspect]
     Active Substance: BUSULFAN
     Indication: PROPHYLAXIS AGAINST TRANSPLANT REJECTION
     Dosage: TEST DOSE: 29 MG (0.8MG/KG) OVER TWO HOURS FROM DAY 2 TO DAY 4 PRIOR TO TRANSPLANT
     Route: 041
  2. CYCLOPHOSPHAMIDE. [Concomitant]
     Active Substance: CYCLOPHOSPHAMIDE
     Indication: PROPHYLAXIS AGAINST TRANSPLANT REJECTION
     Dosage: 14.5MG/KG FROM DAY 5 TO DAY 6 PRIOR TO TRANSPLANT
     Route: 065
  3. BUSULFAN. [Interacting]
     Active Substance: BUSULFAN
     Dosage: FULL DOSE: 102 MG (2.82MG/KG) OVER TWO HOURS EVERY 24 HOURS
     Route: 041
  4. DEXAMETHASONE. [Interacting]
     Active Substance: DEXAMETHASONE
     Dosage: DAILY ADMINISTRATION
     Route: 042
  5. LEVETIRACETAM. [Concomitant]
     Active Substance: LEVETIRACETAM
     Route: 065
  6. FLUDARABINE [Concomitant]
     Active Substance: FLUDARABINE PHOSPHATE
     Indication: PROPHYLAXIS AGAINST TRANSPLANT REJECTION
     Dosage: 30MG/M2 FROM DAY 2 TO DAY 6 PRIOR TO TRANSPLANT
     Route: 065
  7. POSACONAZOLE [Concomitant]
     Active Substance: POSACONAZOLE
     Route: 065

REACTIONS (2)
  - Drug interaction [Unknown]
  - Drug clearance increased [Unknown]
